FAERS Safety Report 9009657 (Version 1)
Quarter: 2013Q1

REPORT INFORMATION
  Report Type: Spontaneous
  Country: US (occurrence: US)
  Receive Date: 20130110
  Receipt Date: 20130110
  Transmission Date: 20140127
  Serious: Yes (Death)
  Sender: FDA-Public Use
  Company Number: US-BAYER-2013-002005

PATIENT
  Age: 54 Year
  Sex: Female

DRUGS (15)
  1. DOCUSATE SODIUM [Suspect]
  2. PARACETAMOL + DIPHENHYDRAMINE [Suspect]
  3. AMITRIPTYLINE [Suspect]
  4. CETIRIZINE [Suspect]
  5. PREDNISONE [Suspect]
  6. TRAZODONE [Suspect]
  7. CAFFEINE [Suspect]
  8. GABAPENTIN [Suspect]
  9. LISINOPRIL [Suspect]
  10. GLUCOMANNAN [Suspect]
  11. MONTELUKAST [Suspect]
  12. LAXATIVES [Suspect]
  13. HYDROXYZINE [Suspect]
  14. MAGNESIUM SALICYLATE [Suspect]
  15. PAMABROM [Suspect]

REACTIONS (1)
  - Toxicity to various agents [Fatal]
